FAERS Safety Report 7387922-7 (Version None)
Quarter: 2011Q2

REPORT INFORMATION
  Report Type: 
  Country: None (occurrence: None)
  Receive Date: 20110401
  Receipt Date: 20110322
  Transmission Date: 20111010
  Serious: Yes (Other)
  Sender: FDA-Public Use
  Company Number: US-BIOGENIDEC-2011BI007933

PATIENT
  Age: 58 Year
  Sex: Female
  Weight: 112 kg

DRUGS (2)
  1. DIOVAN [Concomitant]
     Indication: HYPERTENSION
  2. TYSABRI [Suspect]
     Indication: MULTIPLE SCLEROSIS
     Route: 042
     Dates: start: 20110103, end: 20110131

REACTIONS (2)
  - BREAST CYST [None]
  - BREAST CANCER [None]
